FAERS Safety Report 11083442 (Version 1)
Quarter: 2015Q2

REPORT INFORMATION
  Report Type: Report from Study
  Country: US (occurrence: US)
  Receive Date: 20150501
  Receipt Date: 20150501
  Transmission Date: 20150821
  Serious: No
  Sender: FDA-Public Use
  Company Number: US-ABBVIE-15P-163-1359256-00

PATIENT
  Sex: Male

DRUGS (1)
  1. ANDROGEL [Suspect]
     Active Substance: TESTOSTERONE
     Indication: BLOOD TESTOSTERONE DECREASED
     Dosage: PRESCRIBED 1 PUMPS DAILY AND WAS TAKING 2 PUMPS DAILY.
     Route: 061
     Dates: start: 20140616, end: 201503

REACTIONS (1)
  - Incorrect dose administered [Not Recovered/Not Resolved]
